FAERS Safety Report 7688510-5 (Version None)
Quarter: 2011Q3

REPORT INFORMATION
  Report Type: 
  Country: None (occurrence: None)
  Receive Date: 20110817
  Receipt Date: 20110805
  Transmission Date: 20111222
  Serious: Yes (Hospitalization)
  Sender: FDA-Public Use
  Company Number: US-JNJFOC-20110803739

PATIENT
  Sex: Male
  Weight: 83.92 kg

DRUGS (2)
  1. REMICADE [Suspect]
     Indication: COLITIS ULCERATIVE
     Route: 042
     Dates: start: 20030101, end: 20101001
  2. ASPIRIN [Concomitant]
     Route: 048

REACTIONS (4)
  - COLITIS ULCERATIVE [None]
  - ATAXIA [None]
  - MYOCARDIAL INFARCTION [None]
  - HERPES ZOSTER [None]
